FAERS Safety Report 25147722 (Version 2)
Quarter: 2025Q2

REPORT INFORMATION
  Report Type: Report from Study
  Country: US (occurrence: US)
  Receive Date: 20250402
  Receipt Date: 20250403
  Transmission Date: 20250716
  Serious: Yes (Hospitalization)
  Sender: BIOGEN
  Company Number: US-BIOGEN-2025BI01305591

PATIENT
  Sex: Male

DRUGS (2)
  1. VUMERITY [Suspect]
     Active Substance: DIROXIMEL FUMARATE
     Indication: Multiple sclerosis
     Route: 050
  2. TAMIN D [Concomitant]
     Indication: Product used for unknown indication
     Route: 050

REACTIONS (2)
  - Multiple sclerosis relapse [Unknown]
  - Depression [Unknown]
